FAERS Safety Report 11105161 (Version 2)
Quarter: 2015Q2

REPORT INFORMATION
  Report Type: Spontaneous
  Country: JP (occurrence: JP)
  Receive Date: 20150511
  Receipt Date: 20150518
  Transmission Date: 20150821
  Serious: Yes (Other)
  Sender: FDA-Public Use
  Company Number: PHJP2015JP007218

PATIENT
  Age: 58 Year
  Sex: Female

DRUGS (1)
  1. ZOLEDRONATE [Suspect]
     Active Substance: ZOLEDRONIC ACID
     Indication: METASTASES TO BONE
     Route: 041

REACTIONS (4)
  - Bone formation decreased [Unknown]
  - Fall [Unknown]
  - Atypical femur fracture [Unknown]
  - Resorption bone increased [Unknown]
